FAERS Safety Report 24462352 (Version 1)
Quarter: 2024Q4

REPORT INFORMATION
  Report Type: Spontaneous
  Country: CN (occurrence: CN)
  Receive Date: 20241018
  Receipt Date: 20241018
  Transmission Date: 20250115
  Serious: Yes (Hospitalization, Other)
  Sender: SANOFI AVENTIS
  Company Number: CN-SA-2024SA293875

PATIENT
  Age: 77 Year
  Sex: Male
  Weight: 75 kg

DRUGS (1)
  1. CLOPIDOGREL BISULFATE [Suspect]
     Active Substance: CLOPIDOGREL BISULFATE
     Indication: Anticoagulant therapy
     Dosage: 75 MG, QN
     Route: 048
     Dates: start: 20240919, end: 20240925

REACTIONS (8)
  - Depressed level of consciousness [Unknown]
  - Dysphoria [Unknown]
  - Tremor [Unknown]
  - Oedema peripheral [Recovering/Resolving]
  - Muscle strength abnormal [Recovering/Resolving]
  - Blood pressure systolic increased [Unknown]
  - Platelet count decreased [Recovering/Resolving]
  - Haemorrhage subcutaneous [Unknown]

NARRATIVE: CASE EVENT DATE: 20240925
